FAERS Safety Report 8150133-1 (Version None)
Quarter: 2012Q1

REPORT INFORMATION
  Report Type: 
  Country: None (occurrence: None)
  Receive Date: 20120220
  Receipt Date: 20120208
  Transmission Date: 20120608
  Serious: Yes (Other)
  Sender: FDA-Public Use
  Company Number: US-BIOGENIDEC-2012BI005332

PATIENT
  Sex: Female
  Weight: 52 kg

DRUGS (9)
  1. FLEXHALER [Concomitant]
  2. VENILIN (NOS) [Concomitant]
  3. AVONEX [Suspect]
     Indication: MULTIPLE SCLEROSIS
     Route: 030
     Dates: start: 20050219, end: 20110101
  4. SIMVASTATIN [Concomitant]
  5. BENAZEPRIL HYDROCHLORIDE [Concomitant]
  6. PROZAC [Concomitant]
  7. PULMICORT [Concomitant]
  8. OMEPROZAL [Concomitant]
  9. XANAX [Concomitant]

REACTIONS (4)
  - MEDICAL DEVICE REMOVAL [None]
  - THROMBOSIS [None]
  - HIP FRACTURE [None]
  - ABDOMINAL OPERATION [None]
